FAERS Safety Report 25415358 (Version 1)
Quarter: 2025Q2

REPORT INFORMATION
  Report Type: Report from Study
  Country: US (occurrence: US)
  Receive Date: 20250610
  Receipt Date: 20250610
  Transmission Date: 20250717
  Serious: Yes (Hospitalization)
  Sender: ABBVIE
  Company Number: US-ABBVIE-6316619

PATIENT
  Sex: Male

DRUGS (1)
  1. RINVOQ [Suspect]
     Active Substance: UPADACITINIB
     Indication: Colitis ulcerative
     Dosage: 45MG 1 TABLET BY MOUTH 1 TIME A DAY FOR 8 WEEKS, THEN 30MG 1 TABLET BY MOUTH 1 TIME A DAY
     Route: 048

REACTIONS (3)
  - Colitis [Unknown]
  - Haematochezia [Unknown]
  - Pyrexia [Unknown]
